FAERS Safety Report 9310985 (Version 1)
Quarter: 2013Q2

REPORT INFORMATION
  Report Type: Spontaneous
  Country: PT (occurrence: PT)
  Receive Date: 20130528
  Receipt Date: 20130528
  Transmission Date: 20140414
  Serious: Yes (Death)
  Sender: FDA-Public Use
  Company Number: PT-MERCK-1305PRT013930

PATIENT
  Age: 68 Year
  Sex: Female
  Weight: 63 kg

DRUGS (8)
  1. TEMODAL [Suspect]
     Indication: GLIOBLASTOMA MULTIFORME
     Dosage: IN TOTAL 125 MG OF TEMOZOLOMIDE DAILY
     Route: 048
     Dates: start: 20130312, end: 20130409
  2. TEMODAL [Suspect]
     Indication: GLIOBLASTOMA MULTIFORME
     Dosage: IN TOTAL 125 MG OF TEMOZOLOMIDE DAILY
     Route: 048
     Dates: start: 20130312, end: 20130409
  3. TEMOZOLOMIDE [Suspect]
     Indication: GLIOBLASTOMA MULTIFORME
     Dosage: IN TOTAL THE PATIENT RECEIVED 125 MG OF TEMOZOLOMIDE DAILY
     Route: 048
     Dates: start: 20130312, end: 20130409
  4. DEXAMETHASONE [Concomitant]
     Indication: GLIOBLASTOMA MULTIFORME
     Dosage: 8 MG, QD
     Route: 048
  5. LEVETIRACETAM [Concomitant]
     Indication: EPILEPSY
     Dosage: 500 MG, BID
     Route: 048
  6. PANTOPRAZOLE [Concomitant]
     Indication: PROPHYLAXIS AGAINST GASTROINTESTINAL ULCER
     Dosage: 20 MG, QD
     Route: 048
  7. AMLODIPINE [Concomitant]
     Indication: HYPERTENSION
     Dosage: 10 MG, QD
     Route: 048
  8. PERINDOPRIL [Concomitant]
     Indication: HYPERTENSION
     Dosage: 5 MG, QD
     Route: 048

REACTIONS (4)
  - Thrombocytopenia [Fatal]
  - Leukopenia [Fatal]
  - Pulmonary embolism [Fatal]
  - Sepsis [Fatal]
